FAERS Safety Report 8190309-0 (Version None)
Quarter: 2012Q1

REPORT INFORMATION
  Report Type: 
  Country: None (occurrence: None)
  Receive Date: 20120305
  Receipt Date: 20120217
  Transmission Date: 20120608
  Serious: Yes (Hospitalization)
  Sender: FDA-Public Use
  Company Number: 2012SGN00026

PATIENT
  Age: 38 Year
  Sex: Male

DRUGS (1)
  1. ADCETRIS [Suspect]
     Indication: HODGKIN'S DISEASE
     Dosage: 1.8  MG/KG, Q 14D
     Dates: start: 20110801

REACTIONS (9)
  - HODGKIN'S DISEASE [None]
  - FALL [None]
  - TUMOUR LYSIS SYNDROME [None]
  - ASTHENIA [None]
  - GAIT DISTURBANCE [None]
  - NEOPLASM PROGRESSION [None]
  - JAUNDICE [None]
  - THROMBOCYTOPENIA [None]
  - NEUROPATHY PERIPHERAL [None]
